FAERS Safety Report 10378224 (Version 1)
Quarter: 2014Q3

REPORT INFORMATION
  Report Type: Spontaneous
  Country: US (occurrence: US)
  Receive Date: 20140812
  Receipt Date: 20140812
  Transmission Date: 20150326
  Serious: No
  Sender: FDA-Public Use
  Company Number: US-PFIZER INC-2014221434

PATIENT
  Age: 54 Year
  Sex: Male
  Weight: 78.46 kg

DRUGS (2)
  1. SUTENT [Suspect]
     Active Substance: SUNITINIB MALATE
     Indication: RENAL CANCER
     Dosage: 50 MG (FOLLOWING A CYCLIC SCHEDULE OF 28 DAYS ON THE THERAPY AND 14 DAYS OFF), CYCLIC
     Route: 048
     Dates: start: 20140505
  2. ATENOLOL. [Concomitant]
     Active Substance: ATENOLOL
     Indication: HYPERTENSION
     Dosage: UNK

REACTIONS (3)
  - Platelet count decreased [Unknown]
  - Malaise [Unknown]
  - White blood cell count decreased [Unknown]

NARRATIVE: CASE EVENT DATE: 201405
